FAERS Safety Report 10872749 (Version 1)
Quarter: 2015Q1

REPORT INFORMATION
  Report Type: Spontaneous
  Country: JP (occurrence: JP)
  Receive Date: 20150227
  Receipt Date: 20150227
  Transmission Date: 20150721
  Serious: Yes (Other)
  Sender: FDA-Public Use
  Company Number: JP-009507513-1106USA02698

PATIENT
  Age: 76 Year
  Sex: Male

DRUGS (14)
  1. CARBIDOPA (+) LEVODOPA [Suspect]
     Active Substance: CARBIDOPA\LEVODOPA
     Indication: PARKINSON^S DISEASE
     Dosage: 100 MG, DIVIDED DOSE FREQUENCY UNKNOWN
     Route: 048
     Dates: start: 1997, end: 199806
  2. CARBIDOPA (+) LEVODOPA [Suspect]
     Active Substance: CARBIDOPA\LEVODOPA
     Dosage: 200 MG, DIVIDED DOSE FREQUENCY UNKNOWN
     Route: 048
     Dates: start: 2004, end: 2005
  3. CABERGOLINE. [Concomitant]
     Active Substance: CABERGOLINE
     Dosage: 1.25 MG, DIVIDED DOSE FREQUENCY UNKNOWN
     Route: 048
     Dates: start: 200402, end: 200510
  4. CARBIDOPA (+) LEVODOPA [Suspect]
     Active Substance: CARBIDOPA\LEVODOPA
     Dosage: 200 MG, DIVIDED DOSE FREQUENCY UNKNOWN
     Route: 048
     Dates: start: 199806, end: 199807
  5. CARBIDOPA (+) LEVODOPA [Suspect]
     Active Substance: CARBIDOPA\LEVODOPA
     Dosage: 300 MG, DIVIDED DOSE FREQUENCY UNKNOWN
     Route: 048
     Dates: start: 199807, end: 199808
  6. TRIHEXYPHENIDYL HYDROCHLORIDE. [Suspect]
     Active Substance: TRIHEXYPHENIDYL HYDROCHLORIDE
     Indication: PARKINSON^S DISEASE
     Dosage: DIVIDED DOSE FREQUENCY UNKNOWN
     Route: 048
     Dates: start: 199808, end: 199808
  7. PERGOLIDE MESYLATE. [Concomitant]
     Active Substance: PERGOLIDE MESYLATE
     Indication: PARKINSON^S DISEASE
     Dosage: 100 MCG, DIVIDED DOSE FRECUENCY UNKNOWN
     Route: 048
     Dates: start: 199806, end: 199807
  8. BROMOCRIPTINE MESYLATE [Concomitant]
     Active Substance: BROMOCRIPTINE MESYLATE
     Indication: PARKINSON^S DISEASE
     Dosage: 2.5 MG, DIVIDED DOSE FRECUENCY UNKNOWN
     Route: 048
     Dates: start: 199909
  9. AMANTADINE HYDROCHLORIDE. [Concomitant]
     Active Substance: AMANTADINE HYDROCHLORIDE
     Indication: PARKINSON^S DISEASE
     Dosage: 150 MG DIVIDED DOSE FREQUENCY UNKNOWN
     Route: 048
     Dates: start: 199808
  10. PERGOLIDE MESYLATE. [Concomitant]
     Active Substance: PERGOLIDE MESYLATE
     Dosage: 150 MCG, DIVIDED DOSE FREQUENCY UNKNOWN
     Route: 048
     Dates: start: 199807, end: 199808
  11. CABERGOLINE. [Concomitant]
     Active Substance: CABERGOLINE
     Indication: PARKINSON^S DISEASE
     Dosage: 1 MG, DIVIDED DOSE FREQUENCY UNKNOWN
     Route: 048
     Dates: start: 200210, end: 200402
  12. CARBIDOPA (+) LEVODOPA [Suspect]
     Active Substance: CARBIDOPA\LEVODOPA
     Dosage: 150 MG, DIVIDED DOSE FREQUENCY UNKNOWN
     Route: 048
     Dates: start: 199808, end: 199808
  13. CARBIDOPA (+) LEVODOPA [Suspect]
     Active Substance: CARBIDOPA\LEVODOPA
     Dosage: 300 MG, DIVIDED DOSE FREQUENCY UNKNOWN
     Route: 048
     Dates: start: 200402
  14. CARBIDOPA (+) LEVODOPA [Suspect]
     Active Substance: CARBIDOPA\LEVODOPA
     Dosage: 300 MG, DIVIDED DOSE FREQUENCY UNKNOWN
     Route: 048
     Dates: start: 2005

REACTIONS (4)
  - Persecutory delusion [Unknown]
  - Abnormal behaviour [Recovered/Resolved]
  - Hallucination [Recovered/Resolved]
  - Delusion [Recovered/Resolved]

NARRATIVE: CASE EVENT DATE: 199808
